FAERS Safety Report 8682938 (Version 2)
Quarter: 2012Q4

REPORT INFORMATION
  Report Type: Report from Study
  Country: FR (occurrence: FR)
  Receive Date: 20120725
  Receipt Date: 20121115
  Transmission Date: 20130627
  Serious: Yes (Hospitalization)
  Sender: FDA-Public Use
  Company Number: FR-GLAXOSMITHKLINE-B0800386B

PATIENT
  Age: 57 Year
  Sex: Female
  Weight: 57 kg

DRUGS (14)
  1. PAZOPANIB [Suspect]
     Indication: LEIOMYOSARCOMA
     Dosage: 88800MG cumulative dose
     Route: 048
     Dates: start: 20120203
  2. GEMZAR [Suspect]
     Indication: LEIOMYOSARCOMA
     Dosage: 20032MG cumulative dose
     Route: 042
     Dates: start: 20120202
  3. DUROGESIC [Concomitant]
  4. FENTANYL [Concomitant]
  5. DAFALGAN [Concomitant]
  6. KARDEGIC [Concomitant]
  7. PLAVIX [Concomitant]
  8. ARIXTRA [Concomitant]
  9. INEXIUM [Concomitant]
  10. CRESTOR [Concomitant]
  11. TENORMINE [Concomitant]
  12. IMOVANE [Concomitant]
  13. NOCERTONE [Concomitant]
  14. VASTAREL [Concomitant]

REACTIONS (1)
  - Myocarditis [Recovered/Resolved]
